FAERS Safety Report 6684570-9 (Version None)
Quarter: 2010Q2

REPORT INFORMATION
  Report Type: 
  Country: None (occurrence: None)
  Receive Date: 20100416
  Receipt Date: 20100413
  Transmission Date: 20101027
  Serious: Yes (Other)
  Sender: FDA-Public Use
  Company Number: CH-ROCHE-697085

PATIENT
  Age: 61 Year
  Sex: Female

DRUGS (3)
  1. BEVACIZUMAB [Suspect]
     Indication: NON-SMALL CELL LUNG CANCER
     Route: 042
     Dates: start: 20091126, end: 20100310
  2. CARBOPLATIN [Concomitant]
     Indication: NON-SMALL CELL LUNG CANCER
     Dates: start: 20091126, end: 20100310
  3. TAXOL [Concomitant]
     Indication: NON-SMALL CELL LUNG CANCER
     Dates: start: 20091126, end: 20100310

REACTIONS (1)
  - MALIGNANT NEOPLASM PROGRESSION [None]
